FAERS Safety Report 16821143 (Version 3)
Quarter: 2019Q4

REPORT INFORMATION
  Report Type: Other
  Country: CA (occurrence: CA)
  Receive Date: 20190918
  Receipt Date: 20191025
  Transmission Date: 20200122
  Serious: Yes (Other)
  Sender: FDA-Public Use
  Company Number: CA-APOTEX-2019AP022312

PATIENT
  Age: 31 Year
  Sex: Female

DRUGS (15)
  1. PHENYTOIN. [Suspect]
     Active Substance: PHENYTOIN
     Indication: STATUS EPILEPTICUS
     Dosage: 1 G, UNK
     Route: 065
  2. MAGNESIUM SULFATE. [Suspect]
     Active Substance: MAGNESIUM SULFATE
     Indication: STATUS EPILEPTICUS
     Dosage: 2 MG, UNK
     Route: 065
  3. SUXAMETHONIUM                      /00057702/ [Suspect]
     Active Substance: SUCCINYLCHOLINE
     Indication: ENDOTRACHEAL INTUBATION
     Dosage: 100 MG, UNK
     Route: 065
  4. DEXTROSE INJECTION [Suspect]
     Active Substance: DEXTROSE
     Indication: PRODUCT USED FOR UNKNOWN INDICATION
     Dosage: 50 ML, UNK
     Route: 042
  5. METOCLOPRAMIDE. [Suspect]
     Active Substance: METOCLOPRAMIDE
     Indication: PROPHYLAXIS
     Dosage: 10 MG, UNK
     Route: 042
  6. THIOPENTAL SODIUM. [Suspect]
     Active Substance: THIOPENTAL SODIUM
     Dosage: 300 UNK, 1 EVERY 1 HOURS
     Route: 042
  7. SODIUM CITRATE. [Suspect]
     Active Substance: SODIUM CITRATE
     Indication: PROPHYLAXIS
     Dosage: 30 ML, UNK
     Route: 048
  8. ATIVAN [Suspect]
     Active Substance: LORAZEPAM
     Indication: STATUS EPILEPTICUS
     Dosage: 2 MG, UNK
     Route: 065
  9. MIDAZOLAM [Suspect]
     Active Substance: MIDAZOLAM HYDROCHLORIDE
     Indication: STATUS EPILEPTICUS
     Dosage: 3 MG, UNK
     Route: 065
  10. DIAZEPAM. [Suspect]
     Active Substance: DIAZEPAM
     Indication: STATUS EPILEPTICUS
     Dosage: 10 MG, UNK
     Route: 065
  11. THIOPENTAL SODIUM. [Suspect]
     Active Substance: THIOPENTAL SODIUM
     Indication: STATUS EPILEPTICUS
     Dosage: 250 MG, UNK
     Route: 042
  12. ATIVAN [Suspect]
     Active Substance: LORAZEPAM
     Indication: BIPOLAR DISORDER
  13. PROPOFOL. [Suspect]
     Active Substance: PROPOFOL
     Indication: STATUS EPILEPTICUS
     Dosage: 200 MG, UNK
     Route: 042
  14. PAROXETINE. [Suspect]
     Active Substance: PAROXETINE
     Indication: BIPOLAR DISORDER
     Dosage: UNK
     Route: 065
  15. THIOPENTAL SODIUM. [Suspect]
     Active Substance: THIOPENTAL SODIUM
     Indication: ENDOTRACHEAL INTUBATION
     Dosage: 100 UNK, UNK
     Route: 042

REACTIONS (17)
  - Renal impairment [Not Recovered/Not Resolved]
  - Hypotension [Not Recovered/Not Resolved]
  - Renal ischaemia [Not Recovered/Not Resolved]
  - Loss of consciousness [Not Recovered/Not Resolved]
  - Maternal exposure during pregnancy [Unknown]
  - PCO2 increased [Not Recovered/Not Resolved]
  - PO2 increased [Not Recovered/Not Resolved]
  - Blood calcium decreased [Not Recovered/Not Resolved]
  - Drug ineffective [Not Recovered/Not Resolved]
  - Blood pH decreased [Not Recovered/Not Resolved]
  - Blood bicarbonate decreased [Not Recovered/Not Resolved]
  - Blood magnesium decreased [Not Recovered/Not Resolved]
  - Diabetes insipidus [Not Recovered/Not Resolved]
  - Left ventricular dysfunction [Not Recovered/Not Resolved]
  - Off label use [Not Recovered/Not Resolved]
  - Oxygen saturation abnormal [Not Recovered/Not Resolved]
  - Encephalopathy [Not Recovered/Not Resolved]
